FAERS Safety Report 12938213 (Version 1)
Quarter: 2016Q4

REPORT INFORMATION
  Report Type: Spontaneous
  Country: US (occurrence: US)
  Receive Date: 20161114
  Receipt Date: 20161114
  Transmission Date: 20170207
  Serious: No
  Sender: FDA-Public Use
  Company Number: US-ACADIA PHARMACEUTICALS INC.-ACA-2016-000814

PATIENT
  Sex: Male

DRUGS (2)
  1. NUPLAZID [Suspect]
     Active Substance: PIMAVANSERIN TARTRATE
     Indication: DELUSION
  2. NUPLAZID [Suspect]
     Active Substance: PIMAVANSERIN TARTRATE
     Indication: HALLUCINATION
     Dosage: 34 MG, QD
     Route: 048
     Dates: start: 2016

REACTIONS (5)
  - Tremor [Recovered/Resolved]
  - Nightmare [Recovered/Resolved]
  - Hallucination [Recovered/Resolved]
  - Agitation [Recovered/Resolved]
  - Muscle rigidity [Recovered/Resolved]

NARRATIVE: CASE EVENT DATE: 2016
